FAERS Safety Report 8460743-X (Version None)
Quarter: 2012Q2

REPORT INFORMATION
  Report Type: 
  Country: None (occurrence: None)
  Receive Date: 20120622
  Receipt Date: 20120612
  Transmission Date: 20120825
  Serious: Yes (Hospitalization, Other)
  Sender: FDA-Public Use
  Company Number: US-ELI_LILLY_AND_COMPANY-US201206003885

PATIENT
  Age: 55 Year
  Sex: Female

DRUGS (6)
  1. VICTOZA [Concomitant]
     Dosage: UNK, QD
     Route: 058
  2. LANTUS [Concomitant]
     Dosage: UNK, QD
     Route: 058
  3. BYETTA [Suspect]
     Indication: INSULIN-REQUIRING TYPE 2 DIABETES MELLITUS
     Dosage: 5 UG, BID
     Route: 058
  4. LANTUS [Concomitant]
     Indication: INSULIN-REQUIRING TYPE 2 DIABETES MELLITUS
     Dosage: UNK, BID
     Route: 058
  5. LANTUS [Concomitant]
     Dosage: UNK, BID
     Route: 058
  6. VICTOZA [Concomitant]
     Indication: INSULIN-REQUIRING TYPE 2 DIABETES MELLITUS
     Dosage: UNK, QD
     Route: 058

REACTIONS (3)
  - ANGINA PECTORIS [None]
  - HEADACHE [None]
  - TREMOR [None]
